FAERS Safety Report 15720356 (Version 1)
Quarter: 2018Q4

REPORT INFORMATION
  Report Type: Report from Study
  Country: MX (occurrence: MX)
  Receive Date: 20181213
  Receipt Date: 20181213
  Transmission Date: 20190205
  Serious: Yes (Hospitalization)
  Sender: FDA-Public Use
  Company Number: MX-SHIRE-MX201844504

PATIENT

DRUGS (1)
  1. ELAPRASE [Suspect]
     Active Substance: IDURSULFASE
     Indication: MUCOPOLYSACCHARIDOSIS II
     Dosage: UNK UNK, 1X/WEEK
     Route: 042
     Dates: start: 201408

REACTIONS (3)
  - Malnutrition [Unknown]
  - Respiratory disorder [Unknown]
  - Oedema peripheral [Unknown]
